FAERS Safety Report 7715021-0 (Version None)
Quarter: 2011Q3

REPORT INFORMATION
  Report Type: 
  Country: None (occurrence: None)
  Receive Date: 20110829
  Receipt Date: 20110602
  Transmission Date: 20111222
  Serious: No
  Sender: FDA-Public Use
  Company Number: US-ASTRAZENECA-2011SE34396

PATIENT
  Age: 50 Year
  Sex: Male
  Weight: 86.2 kg

DRUGS (2)
  1. VIMOVO [Suspect]
     Indication: TENDONITIS
     Route: 048
     Dates: start: 20110501
  2. DIAZEPAM [Concomitant]

REACTIONS (2)
  - HEART RATE INCREASED [None]
  - BLOOD PRESSURE INCREASED [None]
